FAERS Safety Report 20700836 (Version 2)
Quarter: 2022Q2

REPORT INFORMATION
  Report Type: Spontaneous
  Country: US (occurrence: US)
  Receive Date: 20220412
  Receipt Date: 20220509
  Transmission Date: 20220721
  Serious: Yes (Death)
  Sender: FDA-Public Use
  Company Number: US-PFIZER INC-2021684657

PATIENT
  Age: 65 Year
  Sex: Female

DRUGS (7)
  1. IBRANCE [Suspect]
     Active Substance: PALBOCICLIB
     Dosage: UNK
     Dates: start: 20210510
  2. IBRANCE [Suspect]
     Active Substance: PALBOCICLIB
     Dosage: 125 MG
     Dates: start: 20210518
  3. IBRANCE [Suspect]
     Active Substance: PALBOCICLIB
     Dosage: UNK
     Dates: start: 20210524
  4. IBRANCE [Suspect]
     Active Substance: PALBOCICLIB
     Dosage: 125 MG
     Dates: start: 20210524
  5. IBRANCE [Suspect]
     Active Substance: PALBOCICLIB
     Dosage: 125 MG
     Dates: start: 20210607, end: 202107
  6. IBRANCE [Suspect]
     Active Substance: PALBOCICLIB
     Dosage: 125 MG
     Dates: start: 20210806
  7. IBRANCE [Suspect]
     Active Substance: PALBOCICLIB
     Dosage: 100 MG

REACTIONS (12)
  - Death [Fatal]
  - Pruritus [Unknown]
  - Initial insomnia [Not Recovered/Not Resolved]
  - Peripheral swelling [Unknown]
  - Ear swelling [Unknown]
  - Insomnia [Unknown]
  - Full blood count abnormal [Unknown]
  - Fatigue [Unknown]
  - Alopecia [Unknown]
  - White blood cell count decreased [Not Recovered/Not Resolved]
  - Rash pruritic [Unknown]
  - Rash [Unknown]
